FAERS Safety Report 9401409 (Version 1)
Quarter: 2013Q3

REPORT INFORMATION
  Report Type: Spontaneous
  Country: CN (occurrence: CN)
  Receive Date: 20130715
  Receipt Date: 20130715
  Transmission Date: 20140515
  Serious: Yes (Other)
  Sender: FDA-Public Use
  Company Number: CN-BAXTER-2013BAX026661

PATIENT
  Age: 56 Year
  Sex: Male
  Weight: 64 kg

DRUGS (2)
  1. 5% GLUCOSE INJECTION [Suspect]
     Indication: CARDIOVASCULAR EVENT PROPHYLAXIS
     Route: 041
     Dates: start: 20120906, end: 20120906
  2. POTASSIUM CHLORIDE [Suspect]
     Indication: CARDIOVASCULAR EVENT PROPHYLAXIS
     Route: 041
     Dates: start: 20120906, end: 20120906

REACTIONS (2)
  - Chills [Recovered/Resolved]
  - Choking [Recovered/Resolved]
